FAERS Safety Report 6093108-9 (Version None)
Quarter: 2009Q1

REPORT INFORMATION
  Report Type: 
  Country: None (occurrence: None)
  Receive Date: 20090226
  Receipt Date: 20090219
  Transmission Date: 20090719
  Serious: Yes (Hospitalization, Disabling)
  Sender: FDA-Public Use
  Company Number: NL-JNJFOC-20090205219

PATIENT
  Sex: Male
  Weight: 98 kg

DRUGS (2)
  1. RISPERDAL [Suspect]
     Indication: SCHIZOPHRENIA
  2. CHAMPIX [Interacting]
     Indication: SMOKING CESSATION THERAPY

REACTIONS (2)
  - DELUSION [None]
  - DRUG INTERACTION [None]
